FAERS Safety Report 4603927-0 (Version None)
Quarter: 2005Q1

REPORT INFORMATION
  Report Type: 
  Country: None (occurrence: None)
  Receive Date: 20050310
  Receipt Date: 20050303
  Transmission Date: 20050727
  Serious: Yes (Death)
  Sender: FDA-Public Use
  Company Number: US-GLAXOSMITHKLINE-A0548219A

PATIENT
  Sex: Male

DRUGS (2)
  1. WELLBUTRIN [Suspect]
     Indication: DEPRESSION
     Route: 048
     Dates: end: 20050101
  2. NO CONCURRENT MEDICATION [Concomitant]

REACTIONS (3)
  - DEATH [None]
  - OVERDOSE [None]
  - SUICIDE ATTEMPT [None]
